FAERS Safety Report 18295545 (Version 3)
Quarter: 2022Q2

REPORT INFORMATION
  Report Type: Spontaneous
  Country: CH (occurrence: CH)
  Receive Date: 20200922
  Receipt Date: 20220504
  Transmission Date: 20220720
  Serious: Yes (Other)
  Sender: FDA-Public Use
  Company Number: CH-SM-2020-15873

PATIENT
  Age: 49 Year
  Sex: Female

DRUGS (3)
  1. IBUPROFEN [Suspect]
     Active Substance: IBUPROFEN
     Indication: Neck pain
     Dosage: 1800 MILLIGRAM DAILY;
     Route: 048
     Dates: start: 20200811, end: 20200814
  2. PANTOPRAZOLE SODIUM [Suspect]
     Active Substance: PANTOPRAZOLE SODIUM
     Indication: Prophylaxis against gastrointestinal ulcer
     Dosage: 120 MILLIGRAM DAILY; PRESCRIBED AT 1X PER DAY, TAKEN IN ERROR AT 3X PER DAY
     Route: 048
     Dates: start: 20200811, end: 20200814
  3. TIZANIDINE [Suspect]
     Active Substance: TIZANIDINE
     Indication: Muscle tightness
     Dosage: 4 MILLIGRAM DAILY;
     Route: 048
     Dates: start: 20200811, end: 20200813

REACTIONS (5)
  - Polyarthritis [Recovered/Resolved]
  - Transaminases increased [Recovered/Resolved]
  - C-reactive protein increased [Recovered/Resolved]
  - Red blood cell sedimentation rate increased [Recovered/Resolved]
  - Pyrexia [Recovered/Resolved]

NARRATIVE: CASE EVENT DATE: 20200811
